FAERS Safety Report 12610367 (Version 1)
Quarter: 2016Q3

REPORT INFORMATION
  Report Type: Spontaneous
  Country: JP (occurrence: JP)
  Receive Date: 20160801
  Receipt Date: 20160801
  Transmission Date: 20161109
  Serious: Yes (Hospitalization, Other)
  Sender: FDA-Public Use
  Company Number: JP-GLAXOSMITHKLINE-JP2016JPN107714

PATIENT
  Age: 81 Year
  Sex: Female
  Weight: 39 kg

DRUGS (2)
  1. VALTREX [Suspect]
     Active Substance: VALACYCLOVIR HYDROCHLORIDE
     Indication: HERPES ZOSTER
     Dosage: 500 MG, 1D
     Route: 048
     Dates: start: 201406, end: 201406
  2. PREDNISOLONE. [Concomitant]
     Active Substance: PREDNISOLONE
     Indication: SARCOIDOSIS
     Dosage: 5 MG, U

REACTIONS (12)
  - Gait disturbance [Recovering/Resolving]
  - Myoclonus [Recovering/Resolving]
  - Toxic encephalopathy [Recovering/Resolving]
  - Electroencephalogram abnormal [Recovering/Resolving]
  - Renal impairment [Recovering/Resolving]
  - Altered state of consciousness [Recovering/Resolving]
  - Dyslalia [Recovering/Resolving]
  - Depressed level of consciousness [Recovering/Resolving]
  - Disorientation [Recovering/Resolving]
  - Dyskinesia [Recovering/Resolving]
  - Restlessness [Recovering/Resolving]
  - White matter lesion [Unknown]

NARRATIVE: CASE EVENT DATE: 201406
